FAERS Safety Report 8579623-4 (Version None)
Quarter: 2012Q3

REPORT INFORMATION
  Report Type: 
  Country: None (occurrence: None)
  Receive Date: 20120808
  Receipt Date: 20120730
  Transmission Date: 20120928
  Serious: Yes (Hospitalization)
  Sender: FDA-Public Use
  Company Number: JP-ASTRAZENECA-2012SE45424

PATIENT
  Age: 78 Year
  Sex: Male
  Weight: 66 kg

DRUGS (3)
  1. RABEPRAZOLE SODIUM [Concomitant]
     Route: 048
     Dates: start: 20120613
  2. MICONAZOLE [Concomitant]
     Route: 049
     Dates: start: 20120614, end: 20120618
  3. XYLOCAINE VISCOUS [Suspect]
     Indication: LOCAL ANAESTHESIA
     Dosage: DOSE UNKNOWN
     Route: 049
     Dates: start: 20120614, end: 20120614

REACTIONS (1)
  - THROAT IRRITATION [None]
